FAERS Safety Report 4766075-5 (Version None)
Quarter: 2005Q3

REPORT INFORMATION
  Report Type: 
  Country: None (occurrence: None)
  Receive Date: 20050906
  Receipt Date: 20050824
  Transmission Date: 20060218
  Serious: Yes (Other)
  Sender: FDA-Public Use
  Company Number: 2005119757

PATIENT
  Age: 78 Year
  Sex: Male
  Weight: 61.4 kg

DRUGS (16)
  1. ZITHROMAX [Suspect]
     Indication: PNEUMONIA PRIMARY ATYPICAL
     Dosage: 500 MG (500 MG, DAILY INTERVAL: EVERY DAY), ORAL
     Route: 048
     Dates: start: 20050819, end: 20050821
  2. AMIODARONE HCL [Concomitant]
  3. DOPAMINE HCL [Concomitant]
  4. FENTANYL [Concomitant]
  5. LASIX [Concomitant]
  6. IBUPROFEN [Concomitant]
  7. INSULIN [Concomitant]
  8. PREVACID [Concomitant]
  9. MIDAZOLAM HCL [Concomitant]
  10. ZOSYN [Concomitant]
  11. PHENYLEPHRINE (PHENYLEPHRINE) [Concomitant]
  12. PREDNISONE [Concomitant]
  13. DILITIAZEM (DILITAZEM) [Concomitant]
  14. VANCOMYCIN [Concomitant]
  15. METHYLPREDNISOLONE [Concomitant]
  16. DOCUSATE (DOCUSATE) [Concomitant]

REACTIONS (1)
  - BLOOD CREATINE PHOSPHOKINASE INCREASED [None]
